FAERS Safety Report 6574019-9 (Version None)
Quarter: 2010Q1

REPORT INFORMATION
  Report Type: 
  Country: None (occurrence: None)
  Receive Date: 20100208
  Receipt Date: 20100126
  Transmission Date: 20100710
  Serious: No
  Sender: FDA-Public Use
  Company Number: US-ELI_LILLY_AND_COMPANY-US200910003815

PATIENT
  Sex: Male

DRUGS (18)
  1. CYMBALTA [Suspect]
     Indication: DEPRESSION
     Dosage: 60 MG, UNK
     Route: 065
     Dates: start: 20090603, end: 20090718
  2. ASPIRIN [Concomitant]
  3. LASIX [Concomitant]
  4. METOPROLOL TARTRATE [Concomitant]
  5. LIPITOR [Concomitant]
  6. MORPHINE [Concomitant]
  7. LYRICA [Concomitant]
  8. ADVAIR DISKUS 100/50 [Concomitant]
  9. PROVENTIL /00139501/ [Concomitant]
  10. MELATONIN [Concomitant]
  11. LOVAZA [Concomitant]
  12. FATTY ACIDS NOS [Concomitant]
  13. CITALOPRAM [Concomitant]
  14. LORAZEPAM [Concomitant]
  15. MECLIZINE [Concomitant]
  16. NITROGLYCERIN [Concomitant]
  17. NORTRIPTYLINE HCL [Concomitant]
  18. PLAVIX [Concomitant]

REACTIONS (2)
  - CONTUSION [None]
  - RASH [None]
